FAERS Safety Report 12214030 (Version 1)
Quarter: 2016Q1

REPORT INFORMATION
  Report Type: Spontaneous
  Country: IL (occurrence: IL)
  Receive Date: 20160328
  Receipt Date: 20160328
  Transmission Date: 20160526
  Serious: Yes (Other)
  Sender: FDA-Public Use
  Company Number: IL-SHIRE-IL201603394

PATIENT
  Age: 20 Year
  Sex: Female

DRUGS (1)
  1. VPRIV [Suspect]
     Active Substance: VELAGLUCERASE ALFA
     Indication: PRODUCT USED FOR UNKNOWN INDICATION
     Dosage: 2000 IU(5 VIALS), OTHER(MONTH)
     Route: 041
     Dates: start: 201501

REACTIONS (1)
  - Benign breast neoplasm [Unknown]

NARRATIVE: CASE EVENT DATE: 2016
